FAERS Safety Report 6253673-5 (Version None)
Quarter: 2009Q3

REPORT INFORMATION
  Report Type: 
  Country: None (occurrence: None)
  Receive Date: 20090701
  Receipt Date: 20090318
  Transmission Date: 20100115
  Serious: Yes (Other)
  Sender: FDA-Public Use
  Company Number: TR-ELI_LILLY_AND_COMPANY-TR200906006556

PATIENT
  Age: 70 Year
  Sex: Female

DRUGS (7)
  1. HUMULIN 70/30 [Suspect]
     Indication: TYPE 2 DIABETES MELLITUS
     Dosage: UNK UNK, 2/D
     Route: 058
     Dates: start: 19990101
  2. HUMULIN 70/30 [Suspect]
     Dosage: 15 IU, EACH EVENING
     Route: 058
     Dates: start: 19990101
  3. GLUFORMIN [Concomitant]
     Indication: TYPE 2 DIABETES MELLITUS
     Dosage: UNK, 2/D
  4. RANTUDIL [Concomitant]
     Indication: ANALGESIC THERAPY
     Dosage: UNK, DAILY (1/D)
  5. ACETYLSALICYLIC ACID [Concomitant]
     Indication: CARDIAC DISORDER
  6. LOSARTAN POTASSIUM AND HYDROCHLOROTHIAZIDE [Concomitant]
     Indication: HYPERTENSION
     Dosage: UNK, DAILY (1/D)
  7. NORVASC [Concomitant]
     Indication: HYPERTENSION
     Dosage: UNK, DAILY (1/D)

REACTIONS (1)
  - CATARACT [None]
